FAERS Safety Report 5066501-0 (Version None)
Quarter: 2006Q3

REPORT INFORMATION
  Report Type: 
  Country: None (occurrence: None)
  Receive Date: 20060801
  Receipt Date: 20060306
  Transmission Date: 20061208
  Serious: Yes (Hospitalization)
  Sender: FDA-Public Use
  Company Number: PL-BRISTOL-MYERS SQUIBB COMPANY-13303664

PATIENT
  Age: 61 Year
  Sex: Female

DRUGS (5)
  1. ORENCIA [Suspect]
     Indication: RHEUMATOID ARTHRITIS
     Route: 042
     Dates: start: 20050622, end: 20060301
  2. METHOTREXATE [Suspect]
     Indication: RHEUMATOID ARTHRITIS
     Route: 048
     Dates: start: 20020625, end: 20060310
  3. DOXAZOSIN [Concomitant]
     Dates: start: 20060209, end: 20060301
  4. METOPROLOL [Concomitant]
     Dates: start: 20060209, end: 20060301
  5. CAPTOPRIL [Concomitant]
     Dates: start: 20060209, end: 20060301

REACTIONS (1)
  - HYPERTENSIVE CRISIS [None]
